FAERS Safety Report 8218401-2 (Version None)
Quarter: 2012Q1

REPORT INFORMATION
  Report Type: 
  Country: None (occurrence: None)
  Receive Date: 20120319
  Receipt Date: 20120312
  Transmission Date: 20120608
  Serious: Yes (Death)
  Sender: FDA-Public Use
  Company Number: SA-GLAXOSMITHKLINE-B0788719A

PATIENT
  Age: 28 Year
  Sex: Male

DRUGS (1)
  1. ARIXTRA [Suspect]
     Indication: COAGULOPATHY
     Dosage: 2.5ML SINGLE DOSE
     Route: 065

REACTIONS (5)
  - BRAIN CONTUSION [None]
  - LOSS OF CONSCIOUSNESS [None]
  - INTRAVENTRICULAR HAEMORRHAGE [None]
  - CEREBRAL HAEMORRHAGE [None]
  - SUBARACHNOID HAEMORRHAGE [None]
